FAERS Safety Report 23249459 (Version 1)
Quarter: 2023Q4

REPORT INFORMATION
  Report Type: Spontaneous
  Country: FR (occurrence: FR)
  Receive Date: 20231201
  Receipt Date: 20231201
  Transmission Date: 20240110
  Serious: Yes (Hospitalization)
  Sender: FDA-Public Use
  Company Number: None

PATIENT

DRUGS (1)
  1. BENLYSTA [Suspect]
     Active Substance: BELIMUMAB
     Indication: Lupus-like syndrome
     Dosage: 200 MG, WE
     Route: 058
     Dates: start: 202301, end: 20231024

REACTIONS (1)
  - Delusional disorder, persecutory type [Recovering/Resolving]

NARRATIVE: CASE EVENT DATE: 20231026
